FAERS Safety Report 4667669-8 (Version None)
Quarter: 2005Q2

REPORT INFORMATION
  Report Type: 
  Country: None (occurrence: None)
  Receive Date: 20050519
  Receipt Date: 20050519
  Transmission Date: 20051028
  Serious: Yes (Hospitalization)
  Sender: FDA-Public Use
  Company Number: None

PATIENT
  Age: 36 Year
  Sex: Male
  Weight: 96 kg

DRUGS (2)
  1. REMERON [Suspect]
     Indication: DEPRESSION
     Dosage: 30 MG DAILY ORAL
     Route: 048
     Dates: start: 20050228, end: 20050301
  2. HYDROCHLOROTHIAZIDE [Concomitant]

REACTIONS (9)
  - DYSPNOEA [None]
  - NAUSEA [None]
  - RASH ERYTHEMATOUS [None]
  - RASH MACULO-PAPULAR [None]
  - RASH PRURITIC [None]
  - SKIN BURNING SENSATION [None]
  - STRIDOR [None]
  - SWOLLEN TONGUE [None]
  - WHEEZING [None]
